FAERS Safety Report 15863702 (Version 2)
Quarter: 2019Q3

REPORT INFORMATION
  Report Type: Spontaneous
  Country: US (occurrence: US)
  Receive Date: 20190124
  Receipt Date: 20190729
  Transmission Date: 20191004
  Serious: Yes (Other)
  Sender: FDA-Public Use
  Company Number: US-ASTRAZENECA-2018SF65942

PATIENT
  Age: 22041 Day
  Sex: Female
  Weight: 86.6 kg

DRUGS (63)
  1. DEXILANT [Suspect]
     Active Substance: DEXLANSOPRAZOLE
     Indication: GASTROOESOPHAGEAL REFLUX DISEASE
     Route: 065
     Dates: start: 20171014
  2. PANTOPRAZOLE [Suspect]
     Active Substance: PANTOPRAZOLE
     Indication: GASTROOESOPHAGEAL REFLUX DISEASE
     Route: 065
     Dates: start: 2016
  3. ZITHROMAX [Concomitant]
     Active Substance: AZITHROMYCIN DIHYDRATE
  4. CLONIDINE. [Concomitant]
     Active Substance: CLONIDINE
  5. TEMAZEPAM. [Concomitant]
     Active Substance: TEMAZEPAM
  6. BUPROPION. [Concomitant]
     Active Substance: BUPROPION
  7. LYRICA [Concomitant]
     Active Substance: PREGABALIN
  8. DICYCLOMINE [Concomitant]
     Active Substance: DICYCLOMINE HYDROCHLORIDE
  9. TIZANIDINE. [Concomitant]
     Active Substance: TIZANIDINE
  10. RELISTOR [Concomitant]
     Active Substance: METHYLNALTREXONE BROMIDE
  11. TOPIRAMATE. [Concomitant]
     Active Substance: TOPIRAMATE
  12. RANITIDINE. [Concomitant]
     Active Substance: RANITIDINE
  13. NEXIUM [Suspect]
     Active Substance: ESOMEPRAZOLE MAGNESIUM
     Indication: GASTROOESOPHAGEAL REFLUX DISEASE
     Route: 048
     Dates: start: 20141103
  14. NEXIUM [Suspect]
     Active Substance: ESOMEPRAZOLE MAGNESIUM
     Indication: GASTROOESOPHAGEAL REFLUX DISEASE
     Dosage: GENERIC
     Route: 065
     Dates: start: 2016, end: 2017
  15. DEXILANT [Suspect]
     Active Substance: DEXLANSOPRAZOLE
     Indication: GASTROOESOPHAGEAL REFLUX DISEASE
     Route: 065
     Dates: start: 2017
  16. MONTELUKAST [Concomitant]
     Active Substance: MONTELUKAST SODIUM
  17. CLONIDINE. [Concomitant]
     Active Substance: CLONIDINE
  18. ROLAIDS [Concomitant]
     Active Substance: CALCIUM CARBONATE\MAGNESIUM HYDROXIDE
  19. NEXIUM [Suspect]
     Active Substance: ESOMEPRAZOLE MAGNESIUM
     Indication: GASTROOESOPHAGEAL REFLUX DISEASE
     Route: 048
     Dates: start: 2014, end: 2016
  20. LIPITOR [Concomitant]
     Active Substance: ATORVASTATIN CALCIUM
  21. HYDROCODONE BITARTRATE AND ACETAMINOPHEN [Concomitant]
     Active Substance: ACETAMINOPHEN\HYDROCODONE BITARTRATE
  22. DIAZEPAM. [Concomitant]
     Active Substance: DIAZEPAM
  23. HYDROCODONE [Concomitant]
     Active Substance: HYDROCODONE
  24. AMOXICILLINE [Concomitant]
     Active Substance: AMOXICILLIN
  25. FLUCONAZOLE. [Concomitant]
     Active Substance: FLUCONAZOLE
  26. CELECOXIB. [Concomitant]
     Active Substance: CELECOXIB
  27. ABILIFY [Concomitant]
     Active Substance: ARIPIPRAZOLE
  28. ARIPRAZOLE [Concomitant]
     Active Substance: ARIPIPRAZOLE
  29. PRAVASTATIN. [Concomitant]
     Active Substance: PRAVASTATIN
  30. ESTRADIOL. [Concomitant]
     Active Substance: ESTRADIOL
  31. NIFEDIPINE. [Concomitant]
     Active Substance: NIFEDIPINE
  32. HALOPERIDOL. [Concomitant]
     Active Substance: HALOPERIDOL
  33. GABAPENTIN. [Concomitant]
     Active Substance: GABAPENTIN
  34. PRAVASTATIN. [Concomitant]
     Active Substance: PRAVASTATIN
  35. HALOPERIDOL. [Concomitant]
     Active Substance: HALOPERIDOL
  36. AMOXICILLIN. [Concomitant]
     Active Substance: AMOXICILLIN
  37. BUSPIRONE [Concomitant]
     Active Substance: BUSPIRONE HYDROCHLORIDE
  38. GABAPENTIN. [Concomitant]
     Active Substance: GABAPENTIN
  39. AMITIZA [Concomitant]
     Active Substance: LUBIPROSTONE
  40. BUPROPION. [Concomitant]
     Active Substance: BUPROPION
  41. CEFDINIR. [Concomitant]
     Active Substance: CEFDINIR
  42. VITAMIN B12 [Concomitant]
     Active Substance: CYANOCOBALAMIN
  43. NEXIUM [Suspect]
     Active Substance: ESOMEPRAZOLE MAGNESIUM
     Indication: GASTROOESOPHAGEAL REFLUX DISEASE
     Dosage: GENERIC
     Route: 065
     Dates: start: 2014, end: 2016
  44. MORPHIN [Concomitant]
     Active Substance: MORPHINE
  45. ZIPRASIDONE. [Concomitant]
     Active Substance: ZIPRASIDONE
  46. VITAMIN D3 [Concomitant]
     Active Substance: CHOLECALCIFEROL
  47. TIZANIDINE. [Concomitant]
     Active Substance: TIZANIDINE
  48. ADVAIR HFA [Concomitant]
     Active Substance: FLUTICASONE PROPIONATE\SALMETEROL XINAFOATE
  49. OXYCODONE [Concomitant]
     Active Substance: OXYCODONE
  50. LINZESS [Concomitant]
     Active Substance: LINACLOTIDE
  51. ATORVASTATIN [Concomitant]
     Active Substance: ATORVASTATIN
  52. TRIAZOLAM. [Concomitant]
     Active Substance: TRIAZOLAM
  53. DIAZEPAM. [Concomitant]
     Active Substance: DIAZEPAM
  54. LATUDA [Concomitant]
     Active Substance: LURASIDONE HYDROCHLORIDE
  55. INVEGA [Concomitant]
     Active Substance: PALIPERIDONE
  56. FENTANYL. [Concomitant]
     Active Substance: FENTANYL
  57. TUMS [Concomitant]
     Active Substance: CALCIUM CARBONATE
  58. ESTRADIOL. [Concomitant]
     Active Substance: ESTRADIOL
  59. TEMAZEPAM. [Concomitant]
     Active Substance: TEMAZEPAM
  60. CEPHALEXIN. [Concomitant]
     Active Substance: CEPHALEXIN
  61. NITROFURANTOIN. [Concomitant]
     Active Substance: NITROFURANTOIN
  62. AZITHROMYCIN ANHYDROUS. [Concomitant]
     Active Substance: AZITHROMYCIN ANHYDROUS
  63. PEPTO-BISMOL [Concomitant]
     Active Substance: BISMUTH SUBSALICYLATE

REACTIONS (3)
  - Chronic kidney disease [Not Recovered/Not Resolved]
  - Rebound effect [Unknown]
  - Hyperchlorhydria [Unknown]

NARRATIVE: CASE EVENT DATE: 20150225
